FAERS Safety Report 8068074-7 (Version None)
Quarter: 2012Q1

REPORT INFORMATION
  Report Type: 
  Country: None (occurrence: None)
  Receive Date: 20120124
  Receipt Date: 20110915
  Transmission Date: 20120608
  Serious: No
  Sender: FDA-Public Use
  Company Number: US-AMGEN-USASP2011047639

PATIENT
  Sex: Female

DRUGS (2)
  1. PROLIA [Suspect]
  2. PROLIA [Suspect]
     Indication: PRODUCT USED FOR UNKNOWN INDICATION

REACTIONS (5)
  - SKIN LESION [None]
  - DYSGEUSIA [None]
  - ABDOMINAL PAIN UPPER [None]
  - MALAISE [None]
  - PAIN IN EXTREMITY [None]
